FAERS Safety Report 20290098 (Version 2)
Quarter: 2022Q1

REPORT INFORMATION
  Report Type: Spontaneous
  Country: US (occurrence: US)
  Receive Date: 20220104
  Receipt Date: 20220223
  Transmission Date: 20220423
  Serious: Yes (Death, Hospitalization, Other)
  Sender: FDA-Public Use
  Company Number: US-VALIDUS PHARMACEUTICALS LLC-US-VDP-2021-014852

PATIENT

DRUGS (3)
  1. FUROSEMIDE [Suspect]
     Active Substance: FUROSEMIDE
     Indication: Suicide attempt
     Dosage: UNK, INGESTION
     Route: 048
  2. DILTIAZEM HYDROCHLORIDE [Suspect]
     Active Substance: DILTIAZEM HYDROCHLORIDE
     Indication: Suicide attempt
     Dosage: UNK,INGESTION
     Route: 048
  3. DIGOXIN [Suspect]
     Active Substance: DIGOXIN
     Indication: Suicide attempt
     Dosage: UNK,INGESTION
     Route: 048

REACTIONS (1)
  - Suspected suicide [Fatal]
